FAERS Safety Report 13330807 (Version 1)
Quarter: 2017Q1

REPORT INFORMATION
  Report Type: Spontaneous
  Country: HR (occurrence: HR)
  Receive Date: 20170314
  Receipt Date: 20170314
  Transmission Date: 20170428
  Serious: Yes (Other)
  Sender: FDA-Public Use
  Company Number: HR-TEVA-746971ACC

PATIENT
  Age: 59 Year
  Sex: Female

DRUGS (3)
  1. SALAZOPYRIN EN [Concomitant]
     Active Substance: SULFASALAZINE
     Indication: OSTEOARTHRITIS
     Dosage: 2000 MILLIGRAM DAILY;
     Route: 048
  2. LANZUL S [Concomitant]
     Indication: PRODUCT USE ISSUE
     Dosage: 30 MILLIGRAM DAILY;
     Route: 048
  3. CELIXIB [Suspect]
     Active Substance: CELECOXIB
     Indication: RHEUMATOID ARTHRITIS
     Dosage: 200 MILLIGRAM DAILY;
     Route: 048
     Dates: start: 20170209, end: 20170210

REACTIONS (4)
  - Asthenia [Recovered/Resolved]
  - Musculoskeletal stiffness [Recovered/Resolved]
  - Tachycardia [Recovered/Resolved]
  - Blood pressure increased [Recovered/Resolved]

NARRATIVE: CASE EVENT DATE: 20170209
